FAERS Safety Report 13350750 (Version 7)
Quarter: 2019Q1

REPORT INFORMATION
  Report Type: Spontaneous
  Country: US (occurrence: US)
  Receive Date: 20170320
  Receipt Date: 20190325
  Transmission Date: 20190417
  Serious: Yes (Hospitalization, Other)
  Sender: FDA-Public Use
  Company Number: US-PFIZER INC-2017077356

PATIENT
  Age: 73 Year
  Sex: Female
  Weight: 69.4 kg

DRUGS (7)
  1. METOPROLOL. [Concomitant]
     Active Substance: METOPROLOL
     Indication: CARDIAC DISORDER
     Dosage: 25 MG, 2X/DAY
     Dates: start: 201510
  2. SIMVASTATIN. [Concomitant]
     Active Substance: SIMVASTATIN
     Indication: BLOOD CHOLESTEROL INCREASED
     Dosage: 20 MG, 1X/DAY  (IN THE EVENING)
  3. LYRICA [Suspect]
     Active Substance: PREGABALIN
     Dosage: 75 MG, 2X/DAY
     Route: 048
  4. LYRICA [Suspect]
     Active Substance: PREGABALIN
     Dosage: 75 MG, 2X/DAY
     Route: 048
  5. CELEBREX [Concomitant]
     Active Substance: CELECOXIB
     Dosage: UNK
     Dates: end: 2016
  6. LYRICA [Suspect]
     Active Substance: PREGABALIN
     Indication: FIBROMYALGIA
     Dosage: 75 MG, 2X/DAY
     Route: 048
     Dates: start: 2015
  7. LEVOTHYROXINE. [Concomitant]
     Active Substance: LEVOTHYROXINE
     Indication: THYROID DISORDER
     Dosage: 112 UG, 1X/DAY

REACTIONS (17)
  - Pain [Not Recovered/Not Resolved]
  - Pre-existing condition improved [Unknown]
  - Bedridden [Not Recovered/Not Resolved]
  - Ulcer [Not Recovered/Not Resolved]
  - Loss of personal independence in daily activities [Unknown]
  - Intentional product misuse [Unknown]
  - Infection [Unknown]
  - Fall [Not Recovered/Not Resolved]
  - Tooth fracture [Unknown]
  - Head injury [Not Recovered/Not Resolved]
  - Neck injury [Not Recovered/Not Resolved]
  - Atrial fibrillation [Not Recovered/Not Resolved]
  - Hand fracture [Unknown]
  - Therapeutic response unexpected [Unknown]
  - Weight increased [Unknown]
  - Myocardial infarction [Unknown]
  - Back pain [Unknown]

NARRATIVE: CASE EVENT DATE: 201510
